FAERS Safety Report 15566642 (Version 1)
Quarter: 2018Q4

REPORT INFORMATION
  Report Type: Spontaneous
  Country: US (occurrence: US)
  Receive Date: 20181025
  Receipt Date: 20181025
  Transmission Date: 20190205
  Serious: No
  Sender: FDA-Public Use
  Company Number: None

PATIENT
  Age: 46 Year
  Sex: Male

DRUGS (5)
  1. CARISOPRODOL. [Concomitant]
     Active Substance: CARISOPRODOL
     Dates: start: 20180608, end: 20181203
  2. TEMAZEPAM. [Concomitant]
     Active Substance: TEMAZEPAM
     Dates: start: 20180904, end: 20181208
  3. HUMIRA [Suspect]
     Active Substance: ADALIMUMAB
     Indication: ANKYLOSING SPONDYLITIS
     Route: 058
     Dates: start: 20171019
  4. OPIUM. [Concomitant]
     Active Substance: OPIUM
     Dates: start: 20180713, end: 20190503
  5. BETAMETH [Concomitant]
     Dates: start: 20181012, end: 20181211

REACTIONS (2)
  - Psoriatic arthropathy [None]
  - Colitis ulcerative [None]
